FAERS Safety Report 4380618-5 (Version None)
Quarter: 2004Q2

REPORT INFORMATION
  Report Type: 
  Country: None (occurrence: None)
  Receive Date: 20040618
  Receipt Date: 20040608
  Transmission Date: 20050107
  Serious: Yes (Life-Threatening, Hospitalization)
  Sender: FDA-Public Use
  Company Number: ES-GLAXOSMITHKLINE-B0335699A

PATIENT
  Age: 38 Year
  Sex: Female

DRUGS (3)
  1. AMOXICILLIN SODIUM + POTASSIUM CLAVULANATE [Suspect]
     Indication: PROPHYLAXIS
     Route: 042
     Dates: start: 20040505, end: 20040505
  2. BUPIVACAIN 0.5% [Concomitant]
     Indication: ANAESTHESIA
     Dosage: 12MG PER DAY
     Route: 037
     Dates: start: 20040505, end: 20040505
  3. MEPIVACAINE 1% [Concomitant]
     Indication: DRUG USE FOR UNKNOWN INDICATION
     Route: 042
     Dates: start: 20040505, end: 20040505

REACTIONS (2)
  - ANAPHYLACTIC SHOCK [None]
  - COMA [None]
